FAERS Safety Report 11875751 (Version 2)
Quarter: 2016Q1

REPORT INFORMATION
  Report Type: Spontaneous
  Country: DE (occurrence: DE)
  Receive Date: 20151229
  Receipt Date: 20160126
  Transmission Date: 20160526
  Serious: Yes (Other)
  Sender: FDA-Public Use
  Company Number: GXKR2015DE005488

PATIENT

DRUGS (1)
  1. BISOPROLOL 1A PHARMA [Suspect]
     Active Substance: BISOPROLOL
     Indication: PRODUCT USED FOR UNKNOWN INDICATION
     Route: 048
     Dates: start: 201506

REACTIONS (5)
  - Nausea [Unknown]
  - Vomiting [Unknown]
  - Pancreatitis [Unknown]
  - Pancreatic carcinoma [Unknown]
  - Abdominal pain [Unknown]
